FAERS Safety Report 6348005-8 (Version None)
Quarter: 2009Q3

REPORT INFORMATION
  Report Type: 
  Country: None (occurrence: None)
  Receive Date: 20090910
  Receipt Date: 20090831
  Transmission Date: 20100115
  Serious: No
  Sender: FDA-Public Use
  Company Number: US-B.I. PHARMACEUTICALS,INC./RIDGEFIELD-2009-BP-08695BP

PATIENT
  Sex: Male

DRUGS (5)
  1. FLOMAX [Suspect]
     Indication: BENIGN PROSTATIC HYPERPLASIA
     Dosage: 0.4 MG
     Route: 048
     Dates: start: 20090720
  2. FLOMAX [Suspect]
     Indication: URINE FLOW DECREASED
  3. PACERONE [Concomitant]
  4. AVODART [Concomitant]
  5. LOVAZA [Concomitant]

REACTIONS (2)
  - HYPOTENSION [None]
  - VISION BLURRED [None]
